FAERS Safety Report 19943571 (Version 1)
Quarter: 2021Q4

REPORT INFORMATION
  Report Type: Spontaneous
  Country: DE (occurrence: DE)
  Receive Date: 20211012
  Receipt Date: 20211012
  Transmission Date: 20220303
  Serious: Yes (Hospitalization)
  Sender: FDA-Public Use
  Company Number: DE-ADRED-06495-01

PATIENT
  Age: 21 Year
  Sex: Female

DRUGS (1)
  1. DICLOFENAC [Suspect]
     Active Substance: DICLOFENAC
     Indication: Product used for unknown indication
     Dosage: 75 MILLIGRAM, BID (75 MG, 1-0-1-0, TABLETTEN)
     Route: 048

REACTIONS (4)
  - Peripheral swelling [Unknown]
  - Rash [Unknown]
  - Swelling of eyelid [Unknown]
  - Ear swelling [Unknown]
